FAERS Safety Report 26122654 (Version 1)
Quarter: 2025Q4

REPORT INFORMATION
  Report Type: Spontaneous
  Country: EU (occurrence: EU)
  Receive Date: 20251204
  Receipt Date: 20251204
  Transmission Date: 20260117
  Serious: Yes (Disabling, Other)
  Sender: ZAMBON
  Company Number: EU-ZAMBON-2021000001

PATIENT

DRUGS (34)
  1. FOSFOMYCIN TROMETHAMINE [Suspect]
     Active Substance: FOSFOMYCIN TROMETHAMINE
     Indication: Product used for unknown indication
     Dosage: UNK
  2. CHLORMADINONE [Suspect]
     Active Substance: CHLORMADINONE
     Indication: Product used for unknown indication
     Dosage: MORE THAN 6 YEARS OF CHLORMADINONE ACETATE
     Dates: start: 2009, end: 2020
  3. NOMEGESTROL ACETATE [Suspect]
     Active Substance: NOMEGESTROL ACETATE
     Indication: Product used for unknown indication
     Dosage: 0 DAYS /MONTH FOR 3MONTHS PREGNANCY PROJECT: DISCONTINUATION OF TREATMENT FROM APRIL 11 1994
     Dates: start: 19931201, end: 19940411
  4. NOMEGESTROL ACETATE [Suspect]
     Active Substance: NOMEGESTROL ACETATE
     Dosage: 20 DAYS / MONTH FOR 3MONTHS OR 6 MONTHS
     Dates: start: 19950308
  5. NOMEGESTROL ACETATE [Suspect]
     Active Substance: NOMEGESTROL ACETATE
     Dosage: 01 JANUARY 2009 :LUTENYL 1T1/2/D QSP 6 MONTHS
     Dates: start: 20090101
  6. NOMEGESTROL ACETATE [Suspect]
     Active Substance: NOMEGESTROL ACETATE
     Dosage: LUTENYL 1 TABLET 1/2 /D6 MONTHS
     Dates: start: 20090401
  7. NOMEGESTROL ACETATE [Suspect]
     Active Substance: NOMEGESTROL ACETATE
     Dosage: MARCH 5, 2012,PRESCRIPTION OF LUTENYL
     Dates: start: 201203
  8. NOMEGESTROL ACETATE [Suspect]
     Active Substance: NOMEGESTROL ACETATE
     Dosage: 20 DAYS / MONTH FOR 6MONTHS ,120
     Dates: start: 201206
  9. NOMEGESTROL ACETATE [Suspect]
     Active Substance: NOMEGESTROL ACETATE
     Dosage: UNK
     Dates: start: 1993, end: 2017
  10. CHLORMADINONE ACETATE [Suspect]
     Active Substance: CHLORMADINONE ACETATE
     Indication: Product used for unknown indication
     Dosage: 10 DAYS/MONTH FOR 3MONTHS RENEWED UNTIL DECEMBER 1993
     Dates: start: 19930127, end: 199312
  11. CHLORMADINONE ACETATE [Suspect]
     Active Substance: CHLORMADINONE ACETATE
     Dosage: HAVE HAD FROM MARCH31, 2010 TO APRIL 7, 2015, A TREATMENT WITH LUTERAN PRESCRIBED BY DR
     Dates: start: 20100331, end: 20170405
  12. CHLORMADINONE ACETATE [Suspect]
     Active Substance: CHLORMADINONE ACETATE
     Dosage: MARCH 30, 2011:LUTERAN10 MG 1T/D FOR 6 MONTHS
     Dates: start: 20110330
  13. CHLORMADINONE ACETATE [Suspect]
     Active Substance: CHLORMADINONE ACETATE
     Dosage: JANUARY 09, 2013:LUTERAN 10 MG 1T/DAY 3 WEEKS/MONTH, FOR 6 MONTHS
     Dates: start: 20130109
  14. CHLORMADINONE ACETATE [Suspect]
     Active Substance: CHLORMADINONE ACETATE
     Dosage: 02 OCTOBER 2014:LUTERAN 10 1T/D CONTINUOUS 3 MONTHS
     Dates: start: 20141002
  15. CHLORMADINONE ACETATE [Suspect]
     Active Substance: CHLORMADINONE ACETATE
     Dosage: 02 DECEMBER 2014 LUTERAN 10 1T/D CONTINUOUS 6 MONTHS
     Dates: start: 20141202
  16. CHLORMADINONE ACETATE [Suspect]
     Active Substance: CHLORMADINONE ACETATE
     Dosage: LUTERAN 101 CP/D CONTINUOUS FOR 1 YEAR STOP 1 WEEK IN CASE OF HEAVY BLEEDING PERSISTING FOR AT LEAST
     Dates: start: 20150407
  17. CHLORMADINONE ACETATE [Suspect]
     Active Substance: CHLORMADINONE ACETATE
     Dosage: JULY 11, 2016: LUTERAN 10 1T/D CONTINUOUS 1 YEAR
     Dates: start: 20160711
  18. CHLORMADINONE ACETATE [Suspect]
     Active Substance: CHLORMADINONE ACETATE
     Dosage: 9 MONTHS
     Dates: start: 2009
  19. CHLORMADINONE ACETATE [Suspect]
     Active Substance: CHLORMADINONE ACETATE
     Dosage: 10 MG, 20 DAYS PER MONTH
     Dates: start: 20170515, end: 202009
  20. CYPROTERONE ACETATE [Suspect]
     Active Substance: CYPROTERONE ACETATE
     Indication: Product used for unknown indication
     Dosage: JUNE 25, 2001 PRESCRIPTION OF ANDROCUR 50MG
     Dates: start: 20010615
  21. CYPROTERONE ACETATE [Suspect]
     Active Substance: CYPROTERONE ACETATE
     Dosage: 20/12/2004: ANDROCUR 1/2T/D CONTINUOUSLY FOR 6 MONTHS
     Dates: start: 20041220
  22. CYPROTERONE ACETATE [Suspect]
     Active Substance: CYPROTERONE ACETATE
     Dosage: APRIL 12, 2005: ANDROCUR 1CP/D CONTINUOUSLY FOR 6 MONTHS
     Dates: start: 20050412
  23. CYPROTERONE ACETATE [Suspect]
     Active Substance: CYPROTERONE ACETATE
     Dosage: SEPTEMBER 21, 2005: ANDROCUR 1/2T/D CONTINUOUSLY FOR 6 MONTHS
     Dates: start: 20050921
  24. CYPROTERONE ACETATE [Suspect]
     Active Substance: CYPROTERONE ACETATE
     Dosage: ANDROCUR 1/2T/DAY CONTINUOUSLY FOR 6 MONTHS (ESTROGEN
     Dates: start: 20060222
  25. CYPROTERONE ACETATE [Suspect]
     Active Substance: CYPROTERONE ACETATE
     Dosage: OCTOBER 18, 2006: ANDROCUR 1/2T/D CONTINUOUSLY FOR 6 MONTHS
     Dates: start: 20061018
  26. CYPROTERONE ACETATE [Suspect]
     Active Substance: CYPROTERONE ACETATE
     Dosage: ANDROCUR 1 TABLET CONTINUOUS 6 MONTHS
     Dates: start: 200706
  27. CYPROTERONE ACETATE [Suspect]
     Active Substance: CYPROTERONE ACETATE
     Dosage: OCTOBER 31, 2007: ANDROCUR 1 TABLET CONTINUOUS 12 MONTHS
     Dates: start: 20071031
  28. CYPROTERONE ACETATE [Suspect]
     Active Substance: CYPROTERONE ACETATE
     Dosage: BETWEEN 12 NOVEMBER 2008 AND 1 APRIL 2009, ANDROCUR? WAS COMBINED WITH LUTENYL
     Dates: start: 20081112, end: 20090401
  29. CYPROTERONE ACETATE [Suspect]
     Active Substance: CYPROTERONE ACETATE
     Dosage: SEPTEMBER 16, 2009: ANDROCUR 1T/D FOR 3 MONTHS
     Dates: start: 20090916
  30. CYPROTERONE ACETATE [Suspect]
     Active Substance: CYPROTERONE ACETATE
     Dosage: FROM 09/10/2004: ANDROCUR 1/2T/D CONTINUOUSLY FOR 6 MONTHS
     Dates: start: 20041009
  31. CYPROTERONE ACETATE [Suspect]
     Active Substance: CYPROTERONE ACETATE
     Dosage: UNK
  32. CHLORHEXIDINE DIACETATE\TIXOCORTOL PIVALATE [Suspect]
     Active Substance: CHLORHEXIDINE DIACETATE\TIXOCORTOL PIVALATE
     Indication: Product used for unknown indication
     Dosage: UNK
  33. IBUPROFEN [Suspect]
     Active Substance: IBUPROFEN
     Indication: Product used for unknown indication
     Dosage: UNK
  34. DEXTROMETHORPHAN HYDROBROMIDE [Suspect]
     Active Substance: DEXTROMETHORPHAN HYDROBROMIDE
     Indication: Product used for unknown indication
     Dosage: UNK

REACTIONS (14)
  - Fatigue [Not Recovered/Not Resolved]
  - Meningioma [Unknown]
  - Adverse event [Unknown]
  - Language disorder [Not Recovered/Not Resolved]
  - Depression [Not Recovered/Not Resolved]
  - Gait disturbance [Not Recovered/Not Resolved]
  - Amnesia [Not Recovered/Not Resolved]
  - Fibrous histiocytoma [Unknown]
  - Lipoma [Unknown]
  - Disturbance in attention [Not Recovered/Not Resolved]
  - Anxiety [Unknown]
  - Dysarthria [Unknown]
  - Motor dysfunction [Not Recovered/Not Resolved]
  - Hamartoma [Unknown]

NARRATIVE: CASE EVENT DATE: 20140401
